FAERS Safety Report 19656869 (Version 2)
Quarter: 2021Q3

REPORT INFORMATION
  Report Type: Spontaneous
  Country: US (occurrence: US)
  Receive Date: 20210804
  Receipt Date: 20210925
  Transmission Date: 20211014
  Serious: No
  Sender: FDA-Public Use
  Company Number: US-SA-2021SA256768

PATIENT
  Age: 36 Year
  Sex: Female

DRUGS (2)
  1. DUPIXENT [Suspect]
     Active Substance: DUPILUMAB
     Indication: ILLNESS
  2. DUPIXENT [Suspect]
     Active Substance: DUPILUMAB
     Indication: ASTHMA
     Dosage: 300 MG, QOW
     Route: 058
     Dates: start: 202103

REACTIONS (9)
  - Gingival pain [Unknown]
  - Myalgia [Unknown]
  - Weight increased [Unknown]
  - Product use in unapproved indication [Unknown]
  - Eyelids pruritus [Unknown]
  - Wheezing [Unknown]
  - Dry eye [Unknown]
  - Eye irritation [Unknown]
  - Toothache [Unknown]
